FAERS Safety Report 7285765-6 (Version None)
Quarter: 2011Q1

REPORT INFORMATION
  Report Type: 
  Country: None (occurrence: None)
  Receive Date: 20110210
  Receipt Date: 20110128
  Transmission Date: 20110831
  Serious: Yes (Hospitalization)
  Sender: FDA-Public Use
  Company Number: PHHY2011JP08030

PATIENT

DRUGS (4)
  1. PREDNISOLONE [Suspect]
     Indication: PROCTITIS ULCERATIVE
     Dosage: 30 MG/DAY
     Route: 048
  2. BETAMETHASONE [Suspect]
     Indication: PROCTITIS ULCERATIVE
     Dosage: 3.95 MG/DAY
     Route: 061
     Dates: start: 20051226
  3. ASPIRIN [Concomitant]
     Indication: PROCTITIS ULCERATIVE
     Dosage: 2250 MG/DAY
     Route: 048
  4. PREDNISOLONE [Suspect]
     Dosage: 50 MG/DAY
     Route: 048

REACTIONS (20)
  - RECTAL HAEMORRHAGE [None]
  - NEUTROPHILIA [None]
  - MUSCLE RIGIDITY [None]
  - COLITIS [None]
  - ABDOMINAL PAIN [None]
  - CANDIDIASIS [None]
  - ABDOMINAL TENDERNESS [None]
  - CLOSTRIDIAL INFECTION [None]
  - HYPOPROTEINAEMIA [None]
  - DIARRHOEA [None]
  - ALANINE AMINOTRANSFERASE INCREASED [None]
  - ENTEROCOLITIS [None]
  - MUCOSAL EROSION [None]
  - GASTROINTESTINAL SOUNDS ABNORMAL [None]
  - PALLOR [None]
  - MALAISE [None]
  - BLOOD PRESSURE DECREASED [None]
  - PROTEIN-LOSING GASTROENTEROPATHY [None]
  - OCCULT BLOOD [None]
  - LEUKOCYTOSIS [None]
